FAERS Safety Report 15600321 (Version 1)
Quarter: 2018Q4

REPORT INFORMATION
  Report Type: Spontaneous
  Country: IT (occurrence: IT)
  Receive Date: 20181109
  Receipt Date: 20181109
  Transmission Date: 20190205
  Serious: Yes (Other)
  Sender: FDA-Public Use
  Company Number: IT-TEVA-2018-IT-973726

PATIENT
  Age: 89 Year
  Sex: Male

DRUGS (1)
  1. LEVOFLOXACIN HEMIHYDRATE [Suspect]
     Active Substance: LEVOFLOXACIN
     Indication: NASOPHARYNGITIS
     Dosage: 500 MILLIGRAM DAILY;
     Route: 048
     Dates: start: 20180101, end: 20181005

REACTIONS (2)
  - Tendon pain [Recovering/Resolving]
  - Blindness transient [Recovering/Resolving]

NARRATIVE: CASE EVENT DATE: 20181011
